FAERS Safety Report 8549827-5 (Version None)
Quarter: 2012Q3

REPORT INFORMATION
  Report Type: 
  Country: None (occurrence: None)
  Receive Date: 20120730
  Receipt Date: 20120720
  Transmission Date: 20120928
  Serious: Yes (Hospitalization, Other)
  Sender: FDA-Public Use
  Company Number: US-CELGENEUS-163-21880-12030809

PATIENT
  Sex: Female
  Weight: 75.4 kg

DRUGS (8)
  1. CHOLECALCIFEROL [Concomitant]
     Dosage: 1000 UNITS
     Route: 048
  2. TOCOPHEROL-D1-ALPHA [Concomitant]
     Dosage: 400 UNITS
     Route: 048
  3. REVLIMID [Suspect]
     Indication: MULTIPLE MYELOMA
     Dosage: 15 MILLIGRAM
     Route: 048
     Dates: start: 20110301, end: 20120208
  4. DEXAMETHASONE [Suspect]
     Indication: MULTIPLE MYELOMA
     Route: 048
  5. OMEPRAZOLE [Concomitant]
     Dosage: 20 MILLIGRAM
     Route: 048
  6. VELCADE [Suspect]
     Indication: MULTIPLE MYELOMA
     Route: 041
  7. OMEGA-3-FATTY ACIDS [Concomitant]
     Dosage: 1000 MILLIGRAM
     Route: 048
  8. AMINOSALICYLIC ACID BUFFERED TAB [Concomitant]
     Dosage: 81 MILLIGRAM
     Route: 048

REACTIONS (2)
  - PLASMACYTOMA [None]
  - INTUSSUSCEPTION [None]
